FAERS Safety Report 5001493-1 (Version None)
Quarter: 2006Q2

REPORT INFORMATION
  Report Type: 
  Country: None (occurrence: None)
  Receive Date: 20060512
  Receipt Date: 20060504
  Transmission Date: 20061013
  Serious: Yes (Life-Threatening, Hospitalization, Disabling)
  Sender: FDA-Public Use
  Company Number: BR-MERCK-0605BRA00011

PATIENT
  Age: 50 Year
  Sex: Female

DRUGS (1)
  1. VIOXX [Suspect]
     Indication: PAIN
     Route: 048
     Dates: start: 20040314, end: 20040405

REACTIONS (4)
  - CARDIAC DISORDER [None]
  - INFECTION [None]
  - PROTEUS INFECTION [None]
  - TOXIC EPIDERMAL NECROLYSIS [None]
